FAERS Safety Report 14952354 (Version 2)
Quarter: 2018Q2

REPORT INFORMATION
  Report Type: Spontaneous
  Country: US (occurrence: US)
  Receive Date: 20180530
  Receipt Date: 20180604
  Transmission Date: 20180711
  Serious: No
  Sender: FDA-Public Use
  Company Number: US-PFIZER INC-2018216573

PATIENT
  Age: 64 Year
  Sex: Female
  Weight: 67 kg

DRUGS (3)
  1. DIAZEPAM. [Concomitant]
     Active Substance: DIAZEPAM
     Indication: VERTIGO
     Dosage: 5 MG, DAILY
     Route: 048
  2. LYRICA [Suspect]
     Active Substance: PREGABALIN
     Indication: FIBROMYALGIA
     Dosage: UNK
  3. TOPAMATE [Concomitant]
     Active Substance: TOPIRAMATE
     Indication: HEADACHE
     Dosage: 100 MG, 2X/DAY
     Route: 048

REACTIONS (2)
  - Increased appetite [Unknown]
  - Weight increased [Unknown]
